FAERS Safety Report 21369275 (Version 3)
Quarter: 2022Q3

REPORT INFORMATION
  Report Type: Other
  Country: US (occurrence: None)
  Receive Date: 20220923
  Receipt Date: 20220929
  Transmission Date: 20221027
  Serious: Yes (Hospitalization)
  Sender: FDA-Public Use
  Company Number: US-ROCHE-3185905

PATIENT
  Age: 46 Year
  Sex: Female
  Weight: 95.340 kg

DRUGS (21)
  1. OCREVUS [Suspect]
     Active Substance: OCRELIZUMAB
     Indication: Relapsing multiple sclerosis
     Dosage: NO, (STRENGTH: 30 MG/ML) 300MG IV X 1 AND 300MG IV X 1 2 WEEKS LATER AND THEN INFUSE 600MG IV 6 X 1I
     Route: 042
     Dates: start: 202201
  2. OCREVUS [Suspect]
     Active Substance: OCRELIZUMAB
     Dosage: INFUSE 300MG INTRAVENOUSLY ON DAYS 1 AND 15 THEN INFUSE 600MG INTRAVENOUSLY EVERY 6 MONTHS
     Route: 042
     Dates: start: 20220215
  3. TECFIDERA [Concomitant]
     Active Substance: DIMETHYL FUMARATE
  4. GABAPENTIN [Concomitant]
     Active Substance: GABAPENTIN
  5. LITHIUM CARBONATE [Concomitant]
     Active Substance: LITHIUM CARBONATE
  6. ABILIFY MAINTENA [Concomitant]
     Active Substance: ARIPIPRAZOLE
  7. ADVAIR DISKUS [Concomitant]
     Active Substance: FLUTICASONE PROPIONATE\SALMETEROL XINAFOATE
  8. ALBUTEROL SULFATE [Concomitant]
     Active Substance: ALBUTEROL SULFATE
  9. BUSPIRONE [Concomitant]
     Active Substance: BUSPIRONE HYDROCHLORIDE
  10. CLONAZEPAM [Concomitant]
     Active Substance: CLONAZEPAM
  11. ESCITALOPRAM [Concomitant]
     Active Substance: ESCITALOPRAM OXALATE
  12. FUROSEMIDE [Concomitant]
     Active Substance: FUROSEMIDE
  13. LEVOCETIRIZINE [Concomitant]
     Active Substance: LEVOCETIRIZINE
  14. MIRTAZAPINE [Concomitant]
     Active Substance: MIRTAZAPINE
  15. MONTELUKAST [Concomitant]
     Active Substance: MONTELUKAST SODIUM
  16. NAPROXEN [Concomitant]
     Active Substance: NAPROXEN
  17. PREDNISONE [Concomitant]
     Active Substance: PREDNISONE
  18. PROAIR HFA [Concomitant]
     Active Substance: ALBUTEROL SULFATE
  19. SPIRIVA RESPIMAT [Concomitant]
     Active Substance: TIOTROPIUM BROMIDE
  20. TRAZODONE [Concomitant]
     Active Substance: TRAZODONE HYDROCHLORIDE
  21. TRIHEXYPHENIDYL [Concomitant]
     Active Substance: TRIHEXYPHENIDYL

REACTIONS (3)
  - Ankle fracture [Recovering/Resolving]
  - COVID-19 [Not Recovered/Not Resolved]
  - Ligament sprain [Not Recovered/Not Resolved]

NARRATIVE: CASE EVENT DATE: 20220601
